FAERS Safety Report 25290466 (Version 4)
Quarter: 2025Q4

REPORT INFORMATION
  Report Type: Report from Study
  Country: US (occurrence: US)
  Receive Date: 20250510
  Receipt Date: 20251231
  Transmission Date: 20260118
  Serious: Yes (Hospitalization, Other)
  Sender: TAKEDA
  Company Number: US-TAKEDA-2023TUS105398

PATIENT
  Sex: Female

DRUGS (5)
  1. TEDUGLUTIDE [Suspect]
     Active Substance: TEDUGLUTIDE
     Indication: Short-bowel syndrome
     Dosage: 0.24 MILLILITER, QD
     Dates: start: 202308
  2. TEDUGLUTIDE [Suspect]
     Active Substance: TEDUGLUTIDE
  3. TEDUGLUTIDE [Suspect]
     Active Substance: TEDUGLUTIDE
  4. TEDUGLUTIDE [Suspect]
     Active Substance: TEDUGLUTIDE
  5. OFEV [Suspect]
     Active Substance: NINTEDANIB
     Indication: Product used for unknown indication
     Dosage: UNK UNK, QD

REACTIONS (8)
  - Pulmonary fibrosis [Unknown]
  - Gastric haemorrhage [Unknown]
  - Haematochezia [Unknown]
  - Blood copper decreased [Unknown]
  - Bladder cyst [Unknown]
  - Vitamin D decreased [Unknown]
  - Fluid retention [Unknown]
  - Diarrhoea [Unknown]

NARRATIVE: CASE EVENT DATE: 20251215
